FAERS Safety Report 25564249 (Version 1)
Quarter: 2025Q3

REPORT INFORMATION
  Report Type: Other
  Country: GB (occurrence: GB)
  Receive Date: 20250716
  Receipt Date: 20250716
  Transmission Date: 20251021
  Serious: Yes (Other)
  Sender: LUPIN
  Company Number: None

PATIENT
  Age: 28 Year
  Sex: Female
  Weight: 56 kg

DRUGS (2)
  1. SERTRALINE [Suspect]
     Active Substance: SERTRALINE HYDROCHLORIDE
     Indication: Anxiety
     Route: 065
  2. SERTRALINE [Suspect]
     Active Substance: SERTRALINE HYDROCHLORIDE
     Route: 065

REACTIONS (2)
  - Hormone level abnormal [Not Recovered/Not Resolved]
  - Maternal exposure during breast feeding [Unknown]

NARRATIVE: CASE EVENT DATE: 20170101
